FAERS Safety Report 6800930-7 (Version None)
Quarter: 2010Q2

REPORT INFORMATION
  Report Type: 
  Country: None (occurrence: None)
  Receive Date: 20100629
  Receipt Date: 20100616
  Transmission Date: 20101027
  Serious: Yes (Other)
  Sender: FDA-Public Use
  Company Number: PHHY2010CZ04362

PATIENT
  Sex: Male

DRUGS (5)
  1. ZOMETA [Suspect]
     Dosage: 4 MG, QMO
  2. THALIDOMID [Concomitant]
  3. VELCADE [Concomitant]
  4. DEXAMETHASONE [Concomitant]
  5. ZOVIRAX [Concomitant]

REACTIONS (6)
  - BONE DISORDER [None]
  - BONE LESION [None]
  - ORAL SURGERY [None]
  - OSTEONECROSIS OF JAW [None]
  - STOMATITIS [None]
  - TOOTH EXTRACTION [None]
